FAERS Safety Report 9416631 (Version 1)
Quarter: 2013Q3

REPORT INFORMATION
  Report Type: Spontaneous
  Country: IN (occurrence: None)
  Receive Date: 20130722
  Receipt Date: 20130722
  Transmission Date: 20140515
  Serious: Yes (Hospitalization)
  Sender: FDA-Public Use
  Company Number: IPC201307-000277

PATIENT
  Age: 63 Year
  Sex: Male

DRUGS (3)
  1. CHLOROQUINE PHOSPHATE [Suspect]
     Route: 048
  2. PIPERACILLIN-TAZO-BACTAM (PIPERACILLIN-TAZO-BACTAM ) (PIPERACILLIN-TAZO-BACTAM) [Concomitant]
  3. PARACETAMOL [Concomitant]

REACTIONS (5)
  - Tonic convulsion [None]
  - Torsade de pointes [None]
  - Sepsis [None]
  - Hypokalaemia [None]
  - Blood calcium decreased [None]
